FAERS Safety Report 4759775-4 (Version None)
Quarter: 2005Q3

REPORT INFORMATION
  Report Type: 
  Country: None (occurrence: None)
  Receive Date: 20050829
  Receipt Date: 20050511
  Transmission Date: 20060218
  Serious: No
  Sender: FDA-Public Use
  Company Number: S05-USA-02495-02

PATIENT

DRUGS (1)
  1. CAMPRAL [Suspect]

REACTIONS (1)
  - TACHYCARDIA [None]
